FAERS Safety Report 11936594 (Version 2)
Quarter: 2020Q2

REPORT INFORMATION
  Report Type: Report from Study
  Country: US (occurrence: US)
  Receive Date: 20160121
  Receipt Date: 20200626
  Transmission Date: 20200713
  Serious: Yes (Hospitalization)
  Sender: FDA-Public Use
  Company Number: US-EISAI MEDICAL RESEARCH-EC-2015-010429

PATIENT
  Age: 43 Year
  Sex: Female

DRUGS (13)
  1. OXYCODONE [Concomitant]
     Active Substance: OXYCODONE
  2. LENVIMA [Interacting]
     Active Substance: LENVATINIB
     Route: 048
     Dates: start: 201512
  3. NAPROSYN [Interacting]
     Active Substance: NAPROXEN
     Indication: PRODUCT USED FOR UNKNOWN INDICATION
     Dosage: UNKNOWN
     Route: 048
  4. LEVOTHYROXINE SODIUM. [Concomitant]
     Active Substance: LEVOTHYROXINE SODIUM
  5. AUGMENTIN [Concomitant]
     Active Substance: AMOXICILLIN\CLAVULANATE POTASSIUM
  6. LENVIMA [Interacting]
     Active Substance: LENVATINIB
     Route: 048
     Dates: start: 20170209
  7. LISINOPRIL. [Suspect]
     Active Substance: LISINOPRIL
     Indication: PRODUCT USED FOR UNKNOWN INDICATION
     Route: 048
  8. LISINOPRIL. [Suspect]
     Active Substance: LISINOPRIL
     Route: 048
  9. LENVIMA [Interacting]
     Active Substance: LENVATINIB
     Route: 048
     Dates: start: 2015, end: 201510
  10. LENVIMA [Interacting]
     Active Substance: LENVATINIB
     Route: 048
     Dates: start: 201510, end: 201512
  11. LENVIMA [Suspect]
     Active Substance: LENVATINIB
     Indication: THYROID CANCER
     Route: 048
     Dates: start: 20150819, end: 2015
  12. LIDOCAINE PATCH 5% [Concomitant]
     Active Substance: LIDOCAINE
  13. FLUTICASONE. [Concomitant]
     Active Substance: FLUTICASONE

REACTIONS (23)
  - Rash [Unknown]
  - Hypersensitivity [Unknown]
  - Rectal haemorrhage [Recovered/Resolved]
  - Pain in extremity [Unknown]
  - Cough [Unknown]
  - Anxiety [Not Recovered/Not Resolved]
  - Blood pressure increased [Recovering/Resolving]
  - Pain in jaw [Unknown]
  - Cystitis [Unknown]
  - Heart rate increased [Recovered/Resolved]
  - Pruritus [Recovered/Resolved]
  - Weight decreased [Unknown]
  - Blister [Recovered/Resolved]
  - Drug interaction [Recovered/Resolved]
  - Blood pressure fluctuation [Unknown]
  - Palpitations [Recovered/Resolved]
  - Gastritis [Not Recovered/Not Resolved]
  - Somnolence [Unknown]
  - Dermatitis acneiform [Unknown]
  - Diarrhoea [Recovered/Resolved]
  - Hypotension [Recovered/Resolved]
  - Swelling [Unknown]
  - Dizziness [Recovered/Resolved]

NARRATIVE: CASE EVENT DATE: 2015
